FAERS Safety Report 10866624 (Version 1)
Quarter: 2015Q1

REPORT INFORMATION
  Report Type: Spontaneous
  Country: US (occurrence: None)
  Receive Date: 20150220
  Receipt Date: 20150220
  Transmission Date: 20150721
  Serious: Yes (Disabling)
  Sender: FDA-Public Use
  Company Number: None

PATIENT
  Age: 69 Year
  Sex: Female
  Weight: 58.97 kg

DRUGS (1)
  1. DICYCLOMINE 20 MG. FILLED BY CVS 12/31/14 [Suspect]
     Active Substance: DICYCLOMINE HYDROCHLORIDE
     Indication: GASTRITIS
     Route: 048
     Dates: start: 20141231, end: 20150103

REACTIONS (6)
  - Decreased activity [None]
  - Pain [None]
  - Myalgia [None]
  - Asthenia [None]
  - Muscle strain [None]
  - Dyspnoea [None]

NARRATIVE: CASE EVENT DATE: 20150103
